FAERS Safety Report 18195398 (Version 7)
Quarter: 2021Q2

REPORT INFORMATION
  Report Type: Report from Study
  Country: JP (occurrence: JP)
  Receive Date: 20200826
  Receipt Date: 20210618
  Transmission Date: 20210717
  Serious: Yes (Other)
  Sender: FDA-Public Use
  Company Number: JP-CELLTRION INC.-2020JP024880

PATIENT

DRUGS (36)
  1. CAPECITABINE. [Suspect]
     Active Substance: CAPECITABINE
     Dosage: 2400 MILLIGRAM, QD
     Route: 048
     Dates: start: 20200427, end: 20200511
  2. CT?P6 [Suspect]
     Active Substance: INVESTIGATIONAL BIOSIMILARS
     Dosage: 270 MILLIGRAM, QD
     Route: 041
     Dates: start: 20200406, end: 20200406
  3. CT?P6 [Suspect]
     Active Substance: INVESTIGATIONAL BIOSIMILARS
     Dosage: 270 MILLIGRAM, QD
     Route: 041
     Dates: start: 20200427, end: 20200427
  4. CT?P6 [Suspect]
     Active Substance: INVESTIGATIONAL BIOSIMILARS
     Dosage: 270 MILLIGRAM, QD
     Route: 041
     Dates: start: 20200824, end: 20200824
  5. CAPECITABINE. [Suspect]
     Active Substance: CAPECITABINE
     Dosage: 2400 MILLIGRAM, QD
     Route: 048
     Dates: start: 20200406, end: 20200420
  6. CAPECITABINE. [Suspect]
     Active Substance: CAPECITABINE
     Dosage: 1800 MILLIGRAM, QD
     Route: 048
     Dates: start: 20200608, end: 20200622
  7. CAPECITABINE. [Suspect]
     Active Substance: CAPECITABINE
     Dosage: 1800 MILLIGRAM, QD
     Route: 048
     Dates: start: 20200727, end: 20200810
  8. CT?P6 [Suspect]
     Active Substance: INVESTIGATIONAL BIOSIMILARS
     Dosage: 270 MILLIGRAM, QD
     Route: 041
     Dates: start: 20200518, end: 20200518
  9. CT?P6 [Suspect]
     Active Substance: INVESTIGATIONAL BIOSIMILARS
     Dosage: 270 MILLIGRAM, QD
     Route: 041
     Dates: start: 20200727, end: 20200727
  10. OXALIPLATIN. [Suspect]
     Active Substance: OXALIPLATIN
     Dosage: 150 MILLIGRAM, QD
     Route: 041
     Dates: start: 20200406, end: 20200406
  11. OXALIPLATIN. [Suspect]
     Active Substance: OXALIPLATIN
     Dosage: 150 MILLIGRAM, QD
     Route: 041
     Dates: start: 20200427, end: 20200427
  12. OXALIPLATIN. [Suspect]
     Active Substance: OXALIPLATIN
     Dosage: 110 MILLIGRAM, QD
     Route: 041
     Dates: start: 20200824, end: 20200824
  13. CAPECITABINE. [Suspect]
     Active Substance: CAPECITABINE
     Dosage: 2400 MILLIGRAM, QD
     Route: 048
     Dates: start: 20200518, end: 20200601
  14. CAPECITABINE. [Suspect]
     Active Substance: CAPECITABINE
     Dosage: 1800 MILLIGRAM, QD
     Route: 048
     Dates: start: 20200629, end: 20200713
  15. CT?P6 [Suspect]
     Active Substance: INVESTIGATIONAL BIOSIMILARS
     Dosage: 270 MILLIGRAM, QD
     Route: 041
     Dates: start: 20200608, end: 20200608
  16. OXALIPLATIN. [Suspect]
     Active Substance: OXALIPLATIN
     Dosage: 110 MILLIGRAM, QD
     Route: 041
     Dates: start: 20200608, end: 20200608
  17. AZUNOL GARGLE LIQUID [Concomitant]
     Active Substance: SODIUM GUALENATE MONOHYDRATE
     Indication: PROPHYLAXIS
     Dosage: UNK
     Dates: start: 20200323
  18. HIRUDOID [Concomitant]
     Active Substance: GLYCOSAMINOGLYCANS
     Indication: PALMAR-PLANTAR ERYTHRODYSAESTHESIA SYNDROME
     Dosage: UNK
     Dates: start: 20200316
  19. LYRICA [Concomitant]
     Active Substance: PREGABALIN
     Indication: TRIGEMINAL NEURALGIA
     Dosage: UNK
     Dates: start: 20200427
  20. CT?P6 [Suspect]
     Active Substance: INVESTIGATIONAL BIOSIMILARS
     Indication: HER2 POSITIVE GASTRIC CANCER
     Dosage: 360 MILLIGRAM, QD
     Route: 041
     Dates: start: 20200316, end: 20200316
  21. CT?P6 [Suspect]
     Active Substance: INVESTIGATIONAL BIOSIMILARS
     Dosage: 270 MILLIGRAM, QD
     Route: 041
     Dates: start: 20200928, end: 20200928
  22. OXALIPLATIN. [Suspect]
     Active Substance: OXALIPLATIN
     Indication: HER2 POSITIVE GASTRIC CANCER
     Dosage: 180 MILLIGRAM, QD
     Route: 041
     Dates: start: 20200316, end: 20200316
  23. CAPECITABINE. [Suspect]
     Active Substance: CAPECITABINE
     Dosage: 1800 MILLIGRAM, QD
     Route: 048
     Dates: start: 20200928, end: 20201012
  24. OXALIPLATIN. [Suspect]
     Active Substance: OXALIPLATIN
     Dosage: 150 MILLIGRAM, QD
     Route: 041
     Dates: start: 20200518, end: 20200518
  25. OXALIPLATIN. [Suspect]
     Active Substance: OXALIPLATIN
     Dosage: 110 MILLIGRAM, QD
     Route: 041
     Dates: start: 20200629, end: 20200629
  26. OXALIPLATIN. [Suspect]
     Active Substance: OXALIPLATIN
     Dosage: 110 MILLIGRAM, QD
     Route: 041
     Dates: start: 20200928, end: 20200928
  27. ALOXI [Concomitant]
     Active Substance: PALONOSETRON HYDROCHLORIDE
     Indication: PROPHYLAXIS OF NAUSEA AND VOMITING
     Dosage: UNK
     Dates: start: 20200316, end: 20200928
  28. DECADRON [Concomitant]
     Active Substance: DEXAMETHASONE
     Indication: PROPHYLAXIS OF NAUSEA AND VOMITING
     Dosage: UNK
     Dates: start: 20200317, end: 20201001
  29. NAUZELIN [Concomitant]
     Active Substance: DOMPERIDONE
     Indication: PROPHYLAXIS OF NAUSEA AND VOMITING
     Dosage: UNK
     Dates: start: 20200406
  30. RINDERON V [Concomitant]
     Active Substance: BETAMETHASONE VALERATE
     Indication: PALMAR-PLANTAR ERYTHRODYSAESTHESIA SYNDROME
     Dosage: UNK
     Dates: start: 20200316
  31. CAPECITABINE. [Suspect]
     Active Substance: CAPECITABINE
     Indication: HER2 POSITIVE GASTRIC CANCER
     Dosage: 3000 MILLIGRAM, QD
     Route: 048
     Dates: start: 20200316, end: 20200323
  32. DEXART [Concomitant]
     Active Substance: DEXAMETHASONE SODIUM PHOSPHATE
     Indication: PROPHYLAXIS OF NAUSEA AND VOMITING
     Dosage: UNK
     Dates: start: 20200316
  33. CT?P6 [Suspect]
     Active Substance: INVESTIGATIONAL BIOSIMILARS
     Dosage: 270 MILLIGRAM, QD
     Route: 041
     Dates: start: 20200629, end: 20200629
  34. OXALIPLATIN. [Suspect]
     Active Substance: OXALIPLATIN
     Dosage: 110 MILLIGRAM, QD
     Route: 041
     Dates: start: 20200727, end: 20200727
  35. CAPECITABINE. [Suspect]
     Active Substance: CAPECITABINE
     Dosage: 1800 MILLIGRAM, QD
     Route: 048
     Dates: start: 20200824, end: 20200907
  36. CELECOX [Concomitant]
     Active Substance: CELECOXIB
     Indication: TRIGEMINAL NEURALGIA
     Dosage: UNK
     Dates: end: 20200726

REACTIONS (11)
  - Hypokalaemia [Recovered/Resolved]
  - Stomatitis [Recovered/Resolved]
  - Diarrhoea [Recovering/Resolving]
  - Malaise [Recovered/Resolved]
  - Platelet count decreased [Recovered/Resolved]
  - Nausea [Recovered/Resolved]
  - Underdose [Unknown]
  - Chills [Recovered/Resolved]
  - Condition aggravated [Recovered/Resolved]
  - Decreased appetite [Recovered/Resolved]
  - Hypoglycaemia [Recovered/Resolved]

NARRATIVE: CASE EVENT DATE: 20200316
